FAERS Safety Report 9031775 (Version 2)
Quarter: 2013Q1

REPORT INFORMATION
  Report Type: Spontaneous
  Country: US (occurrence: US)
  Receive Date: 20130124
  Receipt Date: 20130326
  Transmission Date: 20140127
  Serious: Yes (Hospitalization)
  Sender: FDA-Public Use
  Company Number: US-ELI_LILLY_AND_COMPANY-US201301004241

PATIENT
  Sex: Male
  Weight: 68.12 kg

DRUGS (2)
  1. FORTEO [Suspect]
     Indication: OSTEOPOROSIS
     Dosage: 20 UG, QD
     Route: 058
     Dates: start: 201111
  2. FORTEO [Suspect]
     Dosage: 20 UG, QD
     Route: 058

REACTIONS (6)
  - Hip fracture [Unknown]
  - Fall [Unknown]
  - Rib fracture [Unknown]
  - Pelvic fluid collection [Not Recovered/Not Resolved]
  - Lipoatrophy [Unknown]
  - Inguinal hernia [Unknown]
